FAERS Safety Report 5048820-7 (Version None)
Quarter: 2006Q3

REPORT INFORMATION
  Report Type: 
  Country: None (occurrence: None)
  Receive Date: 20060706
  Receipt Date: 20060629
  Transmission Date: 20061208
  Serious: Yes (Death, Other)
  Sender: FDA-Public Use
  Company Number: TCI2006A02571

PATIENT
  Age: 74 Year
  Sex: Female

DRUGS (9)
  1. LANSOPRAZOLE [Suspect]
     Indication: ULCER HAEMORRHAGE
     Dosage: 15 MG (15 MG, 1 IN 1 D) PER ORAL
     Route: 048
     Dates: start: 20060603, end: 20060616
  2. SELBEX (TEPRENONE) (PREPARATION FOR ORAL USE (NOS)) [Concomitant]
  3. ULCERLMIN (SUCRALFATE) (PREPARATION FOR ORAL USE (NOS)) [Concomitant]
  4. WARFARIN (WARFARIN POTASSIUM) (TABLETS) [Concomitant]
  5. LENDORMIN (BROTIZOLAM) (TABLETS) [Concomitant]
  6. GENTACIN (GENTAMICIN SULFATE) [Concomitant]
  7. MUCODYNE (CARBOCISTEINE) (PREPARATION FOR ORAL USE (NOS)) [Concomitant]
  8. BIOFERMIN (BIOFERMIN) (PREPARATION FOR ORAL USE (NOS)) [Concomitant]
  9. LANIRAPID (METILDIGOXIN) (TABLETS) [Concomitant]

REACTIONS (3)
  - DISSEMINATED INTRAVASCULAR COAGULATION [None]
  - OCULOMUCOCUTANEOUS SYNDROME [None]
  - PYREXIA [None]
